FAERS Safety Report 21173464 (Version 1)
Quarter: 2022Q3

REPORT INFORMATION
  Report Type: Spontaneous
  Country: US (occurrence: None)
  Receive Date: 20220804
  Receipt Date: 20220804
  Transmission Date: 20221026
  Serious: Yes (Hospitalization)
  Sender: FDA-Public Use
  Company Number: None

PATIENT
  Age: 51 Year
  Sex: 0

DRUGS (1)
  1. NATALIZUMAB [Suspect]
     Active Substance: NATALIZUMAB

REACTIONS (4)
  - Dyspnoea [None]
  - Chest discomfort [None]
  - Exophthalmos [None]
  - Chest pain [None]

NARRATIVE: CASE EVENT DATE: 20220803
